FAERS Safety Report 14157428 (Version 1)
Quarter: 2017Q4

REPORT INFORMATION
  Report Type: Spontaneous
  Country: DE (occurrence: DE)
  Receive Date: 20171103
  Receipt Date: 20171103
  Transmission Date: 20180321
  Serious: Yes (Hospitalization)
  Sender: FDA-Public Use
  Company Number: GXKR2017DE005394

PATIENT
  Age: 59 Year
  Sex: Male
  Weight: 90.3 kg

DRUGS (1)
  1. AMOXI 1A PHARMA [Suspect]
     Active Substance: AMOXICILLIN
     Indication: IMPETIGO
     Dosage: 1000 MG, BID
     Route: 048
     Dates: start: 20170720, end: 20170725

REACTIONS (1)
  - Drug eruption [Recovered/Resolved]

NARRATIVE: CASE EVENT DATE: 20170727
